FAERS Safety Report 10109760 (Version 1)
Quarter: 2014Q2

REPORT INFORMATION
  Report Type: Spontaneous
  Country: US (occurrence: None)
  Receive Date: 20140416
  Receipt Date: 20140416
  Transmission Date: 20141212
  Serious: Yes (Other)
  Sender: FDA-Public Use
  Company Number: AUR-APL-201303614

PATIENT
  Age: 58 Year
  Sex: Male
  Weight: 122 kg

DRUGS (2)
  1. LISINOPRIL (LISINOPRIL) [Suspect]
     Indication: CEREBROVASCULAR ACCIDENT
     Dates: end: 201302
  2. PRAVASTATIN (PRAVASTATIN) [Concomitant]

REACTIONS (2)
  - Angioedema [None]
  - Swollen tongue [None]
